FAERS Safety Report 23066227 (Version 1)
Quarter: 2023Q4

REPORT INFORMATION
  Report Type: Spontaneous
  Country: NL (occurrence: NL)
  Receive Date: 20231015
  Receipt Date: 20231015
  Transmission Date: 20240110
  Serious: Yes (Other)
  Sender: FDA-Public Use
  Company Number: NL-LRB-00913335

PATIENT
  Age: 23 Year
  Sex: Male
  Weight: 66 kg

DRUGS (1)
  1. LORAZEPAM [Suspect]
     Active Substance: LORAZEPAM
     Indication: Insomnia
     Dosage: UNK(TABLET, 1 MG (MILLIGRAM))
     Route: 065
     Dates: start: 20230928

REACTIONS (2)
  - Erectile dysfunction [Recovering/Resolving]
  - Ejaculation delayed [Recovering/Resolving]
